FAERS Safety Report 15108561 (Version 1)
Quarter: 2018Q3

REPORT INFORMATION
  Report Type: Spontaneous
  Country: US (occurrence: US)
  Receive Date: 20180705
  Receipt Date: 20180705
  Transmission Date: 20181010
  Serious: No
  Sender: FDA-Public Use
  Company Number: US-BIOGEN-2018BI00601906

PATIENT
  Sex: Female

DRUGS (1)
  1. TYSABRI [Suspect]
     Active Substance: NATALIZUMAB
     Indication: MULTIPLE SCLEROSIS
     Dosage: OFF?LABEL USE
     Route: 065
     Dates: start: 20160429

REACTIONS (2)
  - Multiple sclerosis [Not Recovered/Not Resolved]
  - Prescribed underdose [Not Recovered/Not Resolved]
